FAERS Safety Report 10195428 (Version 2)
Quarter: 2014Q2

REPORT INFORMATION
  Report Type: Report from Study
  Country: FR (occurrence: FR)
  Receive Date: 20140526
  Receipt Date: 20140623
  Transmission Date: 20141212
  Serious: No
  Sender: FDA-Public Use
  Company Number: PHHY2014FR062137

PATIENT
  Age: 56 Year
  Sex: Male

DRUGS (13)
  1. OXALIPLATIN [Suspect]
     Indication: GASTROOESOPHAGEAL CANCER
     Route: 042
     Dates: start: 20131125
  2. FOLINIC ACID [Suspect]
     Indication: GASTROOESOPHAGEAL CANCER
     Route: 042
     Dates: start: 20131125
  3. 5-FLUOROURACIL [Suspect]
     Indication: GASTROOESOPHAGEAL CANCER
     Route: 040
     Dates: start: 20131125
  4. 5-FLUOROURACIL [Suspect]
     Route: 041
     Dates: start: 20131126
  5. ONARTUZUMAB [Suspect]
     Route: 042
     Dates: start: 20131125
  6. ALPRAZOLAM [Concomitant]
     Indication: ANXIETY
     Dosage: 0.25 MG, UNK
     Route: 048
     Dates: start: 20131127
  7. OMEPRAZOLE [Concomitant]
     Indication: GASTROOESOPHAGEAL REFLUX DISEASE
     Dosage: 20 MG, UNK
     Route: 048
     Dates: start: 20131223
  8. EMEND [Concomitant]
     Indication: NAUSEA
     Dosage: 125 MG, UNK
     Route: 048
     Dates: start: 20131125
  9. EMEND [Concomitant]
     Dosage: 80 MG, UNK
     Route: 048
     Dates: start: 20131126
  10. EMEND [Concomitant]
     Dosage: 80 MG, UNK
     Route: 048
     Dates: start: 20131127
  11. ZOPHREN [Concomitant]
     Indication: NAUSEA
     Dosage: 8 MG, UNK
     Route: 042
     Dates: start: 20131125
  12. SOLUPRED [Concomitant]
     Indication: NAUSEA
     Dosage: 60 MG, UNK
     Route: 042
     Dates: start: 20131125
  13. LAMALINE [Concomitant]

REACTIONS (1)
  - Asthenia [Not Recovered/Not Resolved]
